FAERS Safety Report 16914680 (Version 2)
Quarter: 2019Q4

REPORT INFORMATION
  Report Type: Spontaneous
  Country: US (occurrence: US)
  Receive Date: 20191014
  Receipt Date: 20191202
  Transmission Date: 20200122
  Serious: Yes (Hospitalization, Other)
  Sender: FDA-Public Use
  Company Number: US-PFIZER INC-2019437638

PATIENT
  Age: 78 Year
  Sex: Male
  Weight: 88.45 kg

DRUGS (1)
  1. MYLOTARG [Suspect]
     Active Substance: GEMTUZUMAB OZOGAMICIN
     Indication: ACUTE MYELOID LEUKAEMIA
     Dosage: UNK, ONCE EVERY 5 WEEKS
     Route: 042
     Dates: start: 2013

REACTIONS (3)
  - Stomatitis [Not Recovered/Not Resolved]
  - Streptococcal infection [Not Recovered/Not Resolved]
  - White blood cell count decreased [Not Recovered/Not Resolved]
